FAERS Safety Report 8886958 (Version 1)
Quarter: 2012Q4

REPORT INFORMATION
  Report Type: 
  Country: US (occurrence: US)
  Receive Date: 20121105
  Receipt Date: 20121105
  Transmission Date: 20130627
  Serious: No
  Sender: FDA-Public Use
  Company Number: US-PFIZER INC-2012271835

PATIENT
  Age: 17 Year
  Sex: Male

DRUGS (1)
  1. VIAGRA [Suspect]
     Dosage: UNK
     Dates: start: 2011, end: 2011

REACTIONS (2)
  - Cyanopsia [Recovered/Resolved]
  - Chromatopsia [Recovered/Resolved]
